FAERS Safety Report 10371312 (Version 1)
Quarter: 2014Q3

REPORT INFORMATION
  Report Type: Spontaneous
  Country: US (occurrence: None)
  Receive Date: 20140807
  Receipt Date: 20140807
  Transmission Date: 20150326
  Serious: Yes (Hospitalization)
  Sender: FDA-Public Use
  Company Number: None

PATIENT
  Age: 37 Year
  Sex: Female
  Weight: 52.16 kg

DRUGS (1)
  1. CLARITHROMYCIN 500 MG MY HUSBAND THREW AWAY [Suspect]
     Active Substance: CLARITHROMYCIN
     Indication: PHARYNGITIS STREPTOCOCCAL
     Dosage: 2 PILLS TWICE DAILY TAKEN BY MOUTH
     Route: 048
     Dates: start: 20140721, end: 20140725

REACTIONS (2)
  - Mania [None]
  - Vomiting [None]

NARRATIVE: CASE EVENT DATE: 20140726
